FAERS Safety Report 5512855-8 (Version None)
Quarter: 2007Q4

REPORT INFORMATION
  Report Type: 
  Country: None (occurrence: None)
  Receive Date: 20071112
  Receipt Date: 20071109
  Transmission Date: 20080405
  Serious: Yes (Hospitalization)
  Sender: FDA-Public Use
  Company Number: A0686408A

PATIENT
  Sex: Female

DRUGS (2)
  1. NICORETTE [Suspect]
     Indication: TOBACCO ABUSE
     Route: 002
  2. NIQUITIN [Suspect]
     Indication: SMOKING CESSATION THERAPY
     Route: 062

REACTIONS (7)
  - DRUG INEFFECTIVE [None]
  - HYPERSENSITIVITY [None]
  - INSOMNIA [None]
  - IRRITABILITY [None]
  - NERVOUSNESS [None]
  - VENOUS OCCLUSION [None]
  - VIOLENCE-RELATED SYMPTOM [None]
